FAERS Safety Report 6924405-X (Version None)
Quarter: 2010Q3

REPORT INFORMATION
  Report Type: 
  Country: None (occurrence: None)
  Receive Date: 20100728
  Receipt Date: 20100722
  Transmission Date: 20110219
  Serious: No
  Sender: FDA-Public Use
  Company Number: US-144966

PATIENT
  Sex: Male
  Weight: 83.4619 kg

DRUGS (6)
  1. WINRHO SDF LIQUID [Suspect]
     Indication: IDIOPATHIC THROMBOCYTOPENIC PURPURA
     Dosage: 49.9 UG/KG  TOTAL INTRAVENOUS
     Route: 042
     Dates: start: 20100414, end: 20100414
  2. AMLODIPINE [Concomitant]
  3. FLOMAX [Concomitant]
  4. METAMUCIL-2 [Concomitant]
  5. VYTORIN [Concomitant]
  6. MULTI-VITAMINS [Concomitant]

REACTIONS (4)
  - FLANK PAIN [None]
  - HAEMOGLOBIN DECREASED [None]
  - HAEMOLYSIS [None]
  - TRANSFUSION REACTION [None]
